FAERS Safety Report 12931682 (Version 3)
Quarter: 2017Q1

REPORT INFORMATION
  Report Type: Spontaneous
  Country: RU (occurrence: RU)
  Receive Date: 20161110
  Receipt Date: 20170124
  Transmission Date: 20170428
  Serious: Yes (Hospitalization)
  Sender: FDA-Public Use
  Company Number: RU-ELI_LILLY_AND_COMPANY-RU201611001063

PATIENT
  Age: 65 Year
  Sex: Female

DRUGS (2)
  1. LANTUS [Suspect]
     Active Substance: INSULIN GLARGINE
     Indication: PRODUCT USED FOR UNKNOWN INDICATION
     Dosage: UNK, UNKNOWN
     Route: 058
  2. HUMALOG [Suspect]
     Active Substance: INSULIN LISPRO
     Indication: PRODUCT USED FOR UNKNOWN INDICATION
     Dosage: UNK, UNKNOWN
     Route: 058

REACTIONS (3)
  - Limb discomfort [Not Recovered/Not Resolved]
  - Hyperglycaemia [Not Recovered/Not Resolved]
  - Pain in extremity [Not Recovered/Not Resolved]
